FAERS Safety Report 8269388 (Version 4)
Quarter: 2013Q3

REPORT INFORMATION
  Report Type: Report from Study
  Country: JP (occurrence: JP)
  Receive Date: 20111130
  Receipt Date: 20130705
  Transmission Date: 20140515
  Serious: Yes (Life-Threatening, Hospitalization, Other)
  Sender: FDA-Public Use
  Company Number: JP-BRISTOL-MYERS SQUIBB COMPANY-16252652

PATIENT
  Age: 52 Year
  Sex: Male

DRUGS (6)
  1. SPRYCEL [Suspect]
     Indication: CHRONIC MYELOID LEUKAEMIA
     Dosage: 14SEP09-11APR10:50X1MG, 12APR10-22FEB11:70X1MG?FRM 23FEB-19MAR11:70X2MG.
     Route: 048
     Dates: start: 20090914, end: 20110319
  2. GASTER [Concomitant]
     Indication: PROPHYLAXIS
     Route: 048
  3. ZYLORIC [Concomitant]
     Indication: PROPHYLAXIS
     Dosage: TAB
     Route: 048
  4. LUPRAC [Concomitant]
     Dosage: TAB
     Route: 048
     Dates: end: 20110301
  5. LASIX [Concomitant]
     Dosage: TAB
     Route: 048
     Dates: start: 20110302
  6. FLUITRAN [Concomitant]
     Dosage: TAB
     Route: 048
     Dates: end: 20110301

REACTIONS (4)
  - Pleural effusion [Recovered/Resolved]
  - Anaemia [Recovered/Resolved]
  - Platelet count decreased [Recovered/Resolved]
  - Pyrexia [Recovered/Resolved]
